FAERS Safety Report 10395442 (Version 1)
Quarter: 2014Q3

REPORT INFORMATION
  Report Type: Spontaneous
  Country: JP (occurrence: US)
  Receive Date: 20140820
  Receipt Date: 20140820
  Transmission Date: 20150326
  Serious: Yes (Hospitalization, Disabling)
  Sender: FDA-Public Use
  Company Number: JP-009507513-1408USA011207

PATIENT
  Sex: Female
  Weight: 56.24 kg

DRUGS (1)
  1. NUVARING [Suspect]
     Active Substance: ETHINYL ESTRADIOL\ETONOGESTREL
     Indication: PRODUCT USED FOR UNKNOWN INDICATION
     Dosage: 0.12-0.015 MG/24 HR, 1 RING EVERY 3 WEEKS, REMOVE FOR 1 WEEK
     Route: 067
     Dates: start: 2008

REACTIONS (5)
  - Hypoaesthesia [Unknown]
  - Phlebitis [Unknown]
  - Embolism venous [Unknown]
  - Back pain [Unknown]
  - Deep vein thrombosis [Unknown]

NARRATIVE: CASE EVENT DATE: 20090822
